FAERS Safety Report 4725380-9 (Version None)
Quarter: 2005Q3

REPORT INFORMATION
  Report Type: 
  Country: None (occurrence: None)
  Receive Date: 20050721
  Receipt Date: 20050606
  Transmission Date: 20060218
  Serious: No
  Sender: FDA-Public Use
  Company Number: 2005SP001242

PATIENT
  Age: 89 Year
  Sex: Male
  Weight: 83.4619 kg

DRUGS (9)
  1. LUNESTA [Suspect]
     Indication: INSOMNIA
     Dosage: 1 MG;1X;ORAL
     Route: 048
     Dates: start: 20050603
  2. ZOCOR [Concomitant]
  3. HYTRIN [Concomitant]
  4. LEXAPRO [Concomitant]
  5. ATENOLOL [Concomitant]
  6. SYNTHROID [Concomitant]
  7. VITAMIN B COMPLEX CAP [Concomitant]
  8. VITAMIN E [Concomitant]
  9. FOLIC ACID [Concomitant]

REACTIONS (2)
  - DRUG INEFFECTIVE [None]
  - INITIAL INSOMNIA [None]
